FAERS Safety Report 16528921 (Version 8)
Quarter: 2020Q1

REPORT INFORMATION
  Report Type: Spontaneous
  Country: NL (occurrence: NL)
  Receive Date: 20190703
  Receipt Date: 20200226
  Transmission Date: 20200409
  Serious: Yes (Death, Hospitalization)
  Sender: FDA-Public Use
  Company Number: PHHY2019NL151943

PATIENT
  Age: 73 Year
  Sex: Male

DRUGS (11)
  1. MORPHINE [Suspect]
     Active Substance: MORPHINE
     Dosage: (PCA PUMP)
     Route: 041
  2. FENTANYL. [Interacting]
     Active Substance: FENTANYL
     Indication: ANALGESIC THERAPY
     Dosage: 50 MG/H, QD3SDO
     Route: 003
  3. FENTANYL. [Interacting]
     Active Substance: FENTANYL
     Dosage: 37.5 MG/H, QD3SDO
     Route: 003
  4. ENZALUTAMIDE [Interacting]
     Active Substance: ENZALUTAMIDE
     Indication: PROSTATE CANCER METASTATIC
  5. DICLOFENAC [Suspect]
     Active Substance: DICLOFENAC
     Indication: PRODUCT USED FOR UNKNOWN INDICATION
     Dosage: 50 MG, TID
     Route: 065
  6. FENTANYL. [Interacting]
     Active Substance: FENTANYL
     Dosage: 25 MG/H, QD3SDO (1 UG/LITRE)
     Route: 003
  7. OXYCODON [Concomitant]
     Active Substance: OXYCODONE
     Indication: PRODUCT USED FOR UNKNOWN INDICATION
     Dosage: 4 DOSAGE FORM, QD
     Route: 065
  8. MORPHINE [Suspect]
     Active Substance: MORPHINE
     Indication: PRODUCT USED FOR UNKNOWN INDICATION
     Dosage: 2 MILLIGRAM (18X BOLUS DURING 25 HOURS)
     Route: 065
  9. FENTANYL. [Interacting]
     Active Substance: FENTANYL
     Indication: CANCER PAIN
     Dosage: 25 MG/H, QD3SDO
     Route: 003
  10. ENZALUTAMIDE [Interacting]
     Active Substance: ENZALUTAMIDE
     Indication: HORMONE-REFRACTORY PROSTATE CANCER
     Dosage: 160 MG, QD
     Route: 065
  11. FENTANYL. [Interacting]
     Active Substance: FENTANYL
     Dosage: 50 MG/H, QD3SDO (1 UG/LITRE)
     Route: 003

REACTIONS (6)
  - Somnolence [Fatal]
  - Dizziness [Fatal]
  - Spinal pain [Fatal]
  - Drug interaction [Unknown]
  - Drug level decreased [Unknown]
  - Metastases to bone [Fatal]
